FAERS Safety Report 5788642-2 (Version None)
Quarter: 2008Q2

REPORT INFORMATION
  Report Type: 
  Country: None (occurrence: None)
  Receive Date: 20080625
  Receipt Date: 20080625
  Transmission Date: 20081010
  Serious: Yes (Death)
  Sender: FDA-Public Use
  Company Number: None

PATIENT
  Sex: Female
  Weight: 54.4316 kg

DRUGS (1)
  1. DIGOXIN (DIGITEK) ACTAVIS) [Suspect]
     Indication: CARDIAC DISORDER
     Dosage: 0.25 1 X DAY MANY YEARS BEFORE DEATH

REACTIONS (10)
  - DIZZINESS [None]
  - DYSPNOEA [None]
  - ERYTHEMA [None]
  - FAECES DISCOLOURED [None]
  - HALLUCINATION [None]
  - HEART RATE DECREASED [None]
  - HYPERTENSION [None]
  - NAUSEA [None]
  - OXYGEN SATURATION DECREASED [None]
  - URINE OUTPUT DECREASED [None]
